FAERS Safety Report 9698239 (Version 1)
Quarter: 2013Q4

REPORT INFORMATION
  Report Type: Spontaneous
  Country: US (occurrence: US)
  Receive Date: 20131120
  Receipt Date: 20131120
  Transmission Date: 20140711
  Serious: No
  Sender: FDA-Public Use
  Company Number: US-GILEAD-2013-0087799

PATIENT
  Age: 57 Year
  Sex: Female

DRUGS (12)
  1. LETAIRIS [Suspect]
     Indication: PULMONARY HYPERTENSION
     Dosage: 5 MG, QD
     Dates: start: 20130817, end: 20130919
  2. LASIX                              /00032601/ [Concomitant]
  3. HUMALOG [Concomitant]
  4. LISINOPRIL [Concomitant]
  5. ZAROXOLYN [Concomitant]
  6. NEURONTIN [Concomitant]
  7. ASPIRIN [Concomitant]
  8. NITROGLYCERIN [Concomitant]
  9. PLAVIX [Concomitant]
  10. IMDUR [Concomitant]
  11. HYDRALAZINE [Concomitant]
  12. METOPROLOL [Concomitant]

REACTIONS (1)
  - Oedema peripheral [Recovered/Resolved]
